FAERS Safety Report 17577525 (Version 13)
Quarter: 2022Q1

REPORT INFORMATION
  Report Type: Spontaneous
  Country: GB (occurrence: GB)
  Receive Date: 20200324
  Receipt Date: 20220331
  Transmission Date: 20220424
  Serious: Yes (Other)
  Sender: FDA-Public Use
  Company Number: NVSC2020GB077073

PATIENT
  Sex: Male

DRUGS (13)
  1. AMLODIPINE [Suspect]
     Active Substance: AMLODIPINE BESYLATE
     Indication: Product used for unknown indication
     Dosage: UNK
     Route: 065
  2. ATORVASTATIN [Suspect]
     Active Substance: ATORVASTATIN
     Indication: Blood cholesterol abnormal
     Dosage: 40 MG
     Route: 048
  3. LOSARTAN POTASSIUM [Suspect]
     Active Substance: LOSARTAN POTASSIUM
     Indication: Cardiac disorder
     Dosage: 50 MG, QD
     Route: 065
  4. METFORMIN [Suspect]
     Active Substance: METFORMIN HYDROCHLORIDE
     Indication: Diabetes mellitus
     Dosage: 1000 MG, QD
     Route: 048
  5. RIVAROXABAN [Suspect]
     Active Substance: RIVAROXABAN
     Indication: Transient ischaemic attack
     Dosage: 20 MG, QD
     Route: 048
     Dates: start: 20151019
  6. LANSOPRAZOLE [Suspect]
     Active Substance: LANSOPRAZOLE
     Indication: Gastrointestinal disorder
     Dosage: 30 MG, QD, (15 MG BID)
     Route: 048
  7. CHOLECALCIFEROL [Suspect]
     Active Substance: CHOLECALCIFEROL
     Indication: Vitamin D deficiency
     Dosage: UNK
     Route: 048
  8. ENTYVIO [Suspect]
     Active Substance: VEDOLIZUMAB
     Indication: Inflammatory bowel disease
     Dosage: 300 MG
     Route: 042
     Dates: start: 20160808, end: 20170817
  9. CHOLECALCIFEROL [Suspect]
     Active Substance: CHOLECALCIFEROL
     Indication: Vitamin D deficiency
     Dosage: 15 MG
     Route: 048
  10. FLUOROURACIL [Concomitant]
     Active Substance: FLUOROURACIL
     Indication: Skin lesion
     Dosage: UNK
     Route: 061
     Dates: start: 20210808
  11. FLUOROURACIL [Concomitant]
     Active Substance: FLUOROURACIL
     Indication: Inflammatory bowel disease
  12. BISOPROLOL [Concomitant]
     Active Substance: BISOPROLOL
     Indication: Cardiac disorder
     Dosage: 125 MG, QD
     Route: 048
  13. FUCIDIN H [Concomitant]
     Indication: Skin lesion
     Dosage: UNK
     Route: 061

REACTIONS (2)
  - Basal cell carcinoma [Recovered/Resolved]
  - Skin lesion [Recovered/Resolved]

NARRATIVE: CASE EVENT DATE: 20171101
